FAERS Safety Report 4804228-8 (Version None)
Quarter: 2005Q4

REPORT INFORMATION
  Report Type: 
  Country: None (occurrence: None)
  Receive Date: 20051020
  Receipt Date: 20051011
  Transmission Date: 20060501
  Serious: Yes (Hospitalization)
  Sender: FDA-Public Use
  Company Number: PL-BRISTOL-MYERS SQUIBB COMPANY-13142930

PATIENT
  Age: 28 Year
  Sex: Male

DRUGS (3)
  1. CETUXIMAB [Suspect]
     Indication: NON-SMALL CELL LUNG CANCER
     Dosage: MOST RECENT INFUSION: 01-AUG-05 (3RD DOSE).
     Route: 041
     Dates: start: 20050718
  2. CISPLATIN [Suspect]
     Indication: NON-SMALL CELL LUNG CANCER
     Dosage: FIRST INFUSION. DELAYED.
     Route: 042
     Dates: start: 20050718
  3. VINORELBINE [Suspect]
     Indication: NON-SMALL CELL LUNG CANCER
     Dosage: MOST RECENT INFUSION 25-JUL-05 (2ND DOSE).
     Route: 042
     Dates: start: 20050718

REACTIONS (1)
  - PNEUMONIA [None]
